FAERS Safety Report 9255000 (Version 2)
Quarter: 2013Q2

REPORT INFORMATION
  Report Type: Spontaneous
  Country: BR (occurrence: BR)
  Receive Date: 20130425
  Receipt Date: 20130613
  Transmission Date: 20140414
  Serious: Yes (Other)
  Sender: FDA-Public Use
  Company Number: BR-PFIZER INC-2013127907

PATIENT
  Age: 49 Year
  Sex: Female

DRUGS (2)
  1. LYRICA [Suspect]
     Indication: PAIN
     Dosage: 2 CAPSULES (150 MG EACH) A DAY
     Route: 048
     Dates: start: 20100625
  2. CELEBRA [Suspect]
     Indication: PAIN
     Dosage: 200 MG, EVERY 12 HOURS 2X/DAY
     Dates: start: 20030422

REACTIONS (5)
  - Diabetic neuropathy [Unknown]
  - Pain [Not Recovered/Not Resolved]
  - Osteoarthritis [Unknown]
  - Fibromyalgia [Unknown]
  - Medication error [Unknown]
